FAERS Safety Report 14524821 (Version 1)
Quarter: 2018Q1

REPORT INFORMATION
  Report Type: Spontaneous
  Country: US (occurrence: US)
  Receive Date: 20180210
  Receipt Date: 20180210
  Transmission Date: 20180509
  Serious: No
  Sender: FDA-Public Use
  Company Number: None

PATIENT
  Age: 60 Year
  Sex: Female

DRUGS (2)
  1. STIVARGA [Suspect]
     Active Substance: REGORAFENIB
     Indication: HEPATIC CANCER
     Route: 048
     Dates: start: 20180126
  2. STIVARGA [Suspect]
     Active Substance: REGORAFENIB
     Indication: HEPATIC CANCER
     Route: 048
     Dates: start: 20180111, end: 20180121

REACTIONS (3)
  - Gait disturbance [None]
  - Abdominal pain upper [None]
  - Peripheral swelling [None]

NARRATIVE: CASE EVENT DATE: 20180111
